FAERS Safety Report 8471269 (Version 2)
Quarter: 2014Q1

REPORT INFORMATION
  Report Type: Spontaneous
  Country: US (occurrence: US)
  Receive Date: 20120322
  Receipt Date: 20140123
  Transmission Date: 20141002
  Serious: No
  Sender: FDA-Public Use
  Company Number: US-PFIZER INC-2012072381

PATIENT
  Age: 73 Year
  Sex: Female
  Weight: 99.8 kg

DRUGS (16)
  1. LYRICA [Suspect]
     Dosage: 50 MG, 2X/DAY
     Route: 048
     Dates: end: 20120311
  2. LEVOXYL [Suspect]
     Dosage: UNK
  3. CALCIUM [Concomitant]
     Dosage: UNKNOWN DOSE ONCE A DAY
  4. VITAMIN B COMPLEX [Concomitant]
     Dosage: UNKNOWN DOSE ONCE A DAY
  5. FLAXSEED OIL [Concomitant]
     Dosage: UNKNOWN DOSE TWO TIMES A DAY
  6. VITRON-C [Concomitant]
     Indication: MINERAL SUPPLEMENTATION
     Dosage: UNK
  7. HYDROCHLOROTHIAZIDE/TRIAMTERENE [Concomitant]
     Dosage: TRIAMTERENE 75 MG /HYDROCHLOROTHIAZIDE 50 MG
  8. POTASSIUM [Concomitant]
     Dosage: 10 MG, UNK
  9. AMITRIPTYLINE [Concomitant]
     Dosage: 75 MG, UNK
  10. LISINOPRIL [Concomitant]
     Dosage: 10 MG, UNK
  11. MELOXICAM [Concomitant]
     Dosage: UNK
  12. CITALOPRAM [Concomitant]
     Dosage: 10 MG, UNK
  13. PRAVASTATIN [Concomitant]
     Dosage: 20 MG, UNK
  14. ALLOPURINOL [Concomitant]
     Dosage: 100 MG, UNK
  15. IRON [Concomitant]
     Dosage: UNK
  16. LORATADINE [Concomitant]
     Dosage: 10 MG, UNK

REACTIONS (3)
  - Pain in extremity [Not Recovered/Not Resolved]
  - Dizziness [Not Recovered/Not Resolved]
  - Paraesthesia [Not Recovered/Not Resolved]
